FAERS Safety Report 11038422 (Version 3)
Quarter: 2015Q4

REPORT INFORMATION
  Report Type: Spontaneous
  Country: US (occurrence: US)
  Receive Date: 20150416
  Receipt Date: 20151026
  Transmission Date: 20160304
  Serious: Yes (Other)
  Sender: FDA-Public Use
  Company Number: US-009507513-1504USA015642

PATIENT
  Sex: Male
  Weight: 72.56 kg

DRUGS (4)
  1. PROTONIX [Concomitant]
     Active Substance: PANTOPRAZOLE SODIUM
     Indication: GASTROOESOPHAGEAL REFLUX DISEASE
     Dosage: UNK
     Route: 065
     Dates: start: 1998
  2. ZOLOFT [Concomitant]
     Active Substance: SERTRALINE HYDROCHLORIDE
     Indication: DEPRESSED MOOD
     Dates: start: 20010223, end: 20071220
  3. PROSCAR [Suspect]
     Active Substance: FINASTERIDE
     Indication: HAIR DISORDER
     Dosage: UNK, UNK
     Route: 048
     Dates: end: 20091122
  4. PROPECIA [Suspect]
     Active Substance: FINASTERIDE
     Indication: ANDROGENETIC ALOPECIA
     Dosage: 1 MG, UNK
     Route: 048
     Dates: start: 20010119, end: 20100801

REACTIONS (28)
  - Abdominal distension [Unknown]
  - Sleep apnoea syndrome [Unknown]
  - Sexual dysfunction [Not Recovered/Not Resolved]
  - Libido decreased [Not Recovered/Not Resolved]
  - Drug ineffective [Unknown]
  - Genital atrophy [Unknown]
  - Asthenia [Unknown]
  - Blood cholesterol [Unknown]
  - Depressed mood [Unknown]
  - Off label use [Unknown]
  - Organic erectile dysfunction [Unknown]
  - Epididymal cyst [Unknown]
  - Dizziness [Unknown]
  - Hypogonadism [Unknown]
  - Paraesthesia [Unknown]
  - Gynaecomastia [Unknown]
  - Surgery [Unknown]
  - Muscle atrophy [Unknown]
  - Infertility [Not Recovered/Not Resolved]
  - Libido decreased [Not Recovered/Not Resolved]
  - Rotator cuff repair [Unknown]
  - Penile size reduced [Unknown]
  - Weight decreased [Unknown]
  - Semen volume decreased [Not Recovered/Not Resolved]
  - Muscular weakness [Unknown]
  - Confusional state [Unknown]
  - Erectile dysfunction [Not Recovered/Not Resolved]
  - Testicular pain [Unknown]

NARRATIVE: CASE EVENT DATE: 20010223
